FAERS Safety Report 25221894 (Version 1)
Quarter: 2025Q2

REPORT INFORMATION
  Report Type: Spontaneous
  Country: US (occurrence: US)
  Receive Date: 20250421
  Receipt Date: 20250421
  Transmission Date: 20250717
  Serious: Yes (Death, Life-Threatening, Hospitalization)
  Sender: MYLAN
  Company Number: US-MYLANLABS-2025M1034450

PATIENT
  Age: 62 Year
  Sex: Male

DRUGS (2)
  1. ATORVASTATIN CALCIUM [Suspect]
     Active Substance: ATORVASTATIN CALCIUM
     Indication: Metabolic dysfunction-associated steatohepatitis
  2. ATORVASTATIN CALCIUM [Suspect]
     Active Substance: ATORVASTATIN CALCIUM
     Indication: Hepatic cirrhosis

REACTIONS (6)
  - Cardiac arrest [Fatal]
  - Rhabdomyolysis [Fatal]
  - Acute kidney injury [Unknown]
  - Arrhythmia [Unknown]
  - Hyperkalaemia [Unknown]
  - Off label use [Unknown]
